FAERS Safety Report 8134301-0 (Version None)
Quarter: 2012Q1

REPORT INFORMATION
  Report Type: 
  Country: None (occurrence: None)
  Receive Date: 20120209
  Receipt Date: 20120201
  Transmission Date: 20120608
  Serious: Yes (Hospitalization, Other)
  Sender: FDA-Public Use
  Company Number: AUR-APL-2012-00746

PATIENT
  Age: 52 Year
  Sex: Female

DRUGS (7)
  1. VALPROATE SODIUM [Concomitant]
  2. ACETAMINOPHEN [Concomitant]
  3. HYDROXYCHLOROQUINE SULFATE [Concomitant]
  4. PAROXETINE HCL [Suspect]
     Indication: PRODUCT USED FOR UNKNOWN INDICATION
  5. FOLIC ACID [Concomitant]
  6. LORAZEPAM [Concomitant]
  7. CLOZAPINE [Suspect]
     Indication: PRODUCT USED FOR UNKNOWN INDICATION
     Dosage: ORAL
     Route: 048
     Dates: start: 20110204, end: 20111213

REACTIONS (6)
  - NEUTROPENIA [None]
  - DRUG LEVEL INCREASED [None]
  - MYOCLONUS [None]
  - LYMPHOCYTE COUNT DECREASED [None]
  - DRUG INTERACTION [None]
  - DYSTONIA [None]
